FAERS Safety Report 4856382-X (Version None)
Quarter: 2005Q4

REPORT INFORMATION
  Report Type: 
  Country: None (occurrence: None)
  Receive Date: 20051219
  Receipt Date: 20050210
  Transmission Date: 20060501
  Serious: No
  Sender: FDA-Public Use
  Company Number: US-GLAXOSMITHKLINE-A0545238A

PATIENT
  Age: 71 Year
  Sex: Female

DRUGS (5)
  1. NICODERM CQ [Suspect]
     Dates: start: 20050201
  2. EQUATE NICOTINE GUM 2MG [Suspect]
     Dates: start: 20050201
  3. COMMIT [Suspect]
     Dates: start: 20050201
  4. NICODERM [Suspect]
  5. NICOTROL [Concomitant]

REACTIONS (4)
  - APPLICATION SITE ERYTHEMA [None]
  - APPLICATION SITE PRURITUS [None]
  - APPLICATION SITE REACTION [None]
  - DERMATITIS CONTACT [None]
